FAERS Safety Report 6441059-X (Version None)
Quarter: 2009Q4

REPORT INFORMATION
  Report Type: 
  Country: None (occurrence: None)
  Receive Date: 20091116
  Receipt Date: 20091106
  Transmission Date: 20100525
  Serious: Yes (Other)
  Sender: FDA-Public Use
  Company Number: CA-ROCHE-667392

PATIENT
  Sex: Female
  Weight: 57.8 kg

DRUGS (3)
  1. PEG-INTERFERON ALFA 2A (RO 25-8310) [Suspect]
     Indication: HEPATITIS C
     Dosage: FORM: PRE-FILLED SYRINGE (PER PROTOCOL)
     Route: 058
     Dates: start: 20090821, end: 20091106
  2. RIBAVIRIN [Suspect]
     Indication: HEPATITIS C
     Dosage: FORM PER PROTOCOL
     Route: 048
     Dates: start: 20090821, end: 20091106
  3. BLINDED TMC435 [Suspect]
     Indication: HEPATITIS C
     Dosage: DOSE BLINDED, FREQUENCY: EARLY MORNING
     Route: 048
     Dates: start: 20090821, end: 20091106

REACTIONS (1)
  - OCULAR VASCULITIS [None]
